FAERS Safety Report 9941183 (Version 1)
Quarter: 2014Q1

REPORT INFORMATION
  Report Type: Report from Study
  Country: US (occurrence: US)
  Receive Date: 20140303
  Receipt Date: 20140303
  Transmission Date: 20141002
  Serious: No
  Sender: FDA-Public Use
  Company Number: US-ABBVIE-13P-163-1040862-00

PATIENT
  Age: 70 Year
  Sex: Female

DRUGS (22)
  1. HUMIRA [Suspect]
     Indication: PSORIATIC ARTHROPATHY
     Route: 058
     Dates: start: 20120828
  2. NORVASC [Concomitant]
     Indication: CARDIAC DISORDER
     Dosage: 5 MG DAILY
  3. POTASSIUM [Concomitant]
     Indication: PRODUCT USED FOR UNKNOWN INDICATION
     Dosage: 10 MG DAILY
  4. MECLIZINE [Concomitant]
     Indication: PRODUCT USED FOR UNKNOWN INDICATION
  5. LOMOTIL [Concomitant]
     Indication: PRODUCT USED FOR UNKNOWN INDICATION
     Dosage: 2.5 MG UP TO 4 TIMES DAILY
  6. INDERAL [Concomitant]
     Indication: HYPERTENSION
  7. ZOCOR [Concomitant]
     Indication: PRODUCT USED FOR UNKNOWN INDICATION
     Dosage: 20 MG DAILY
  8. ARICEPT [Concomitant]
     Indication: DEMENTIA ALZHEIMER^S TYPE
     Dosage: 5 MG IN A.M. AND 10 MG IN P.M.
  9. VYVANSE [Concomitant]
     Indication: NARCOLEPSY
     Dosage: 70 MG DAILY
  10. HALCION [Concomitant]
     Indication: SLEEP DISORDER THERAPY
  11. XANAX [Concomitant]
     Indication: PRODUCT USED FOR UNKNOWN INDICATION
     Dosage: EVERY NIGHT
  12. DEMEROL [Concomitant]
     Indication: PAIN
  13. PHENERGAN [Concomitant]
     Indication: NAUSEA
     Dosage: 25 MG DAILY
  14. ALIGN PROBIOTIC [Concomitant]
     Indication: PRODUCT USED FOR UNKNOWN INDICATION
  15. EPI E-Z [Concomitant]
     Indication: ALLERGY TO ARTHROPOD STING
  16. LASIX [Concomitant]
     Indication: SWELLING
     Dosage: 40/80 MG
  17. VIT B12 [Concomitant]
     Indication: PROPHYLAXIS
  18. ZINC [Concomitant]
     Indication: PRODUCT USED FOR UNKNOWN INDICATION
  19. FOLIC ACID [Concomitant]
     Indication: PRODUCT USED FOR UNKNOWN INDICATION
  20. VITAMIN D3 [Concomitant]
     Indication: PRODUCT USED FOR UNKNOWN INDICATION
  21. CALCIUM [Concomitant]
     Indication: PRODUCT USED FOR UNKNOWN INDICATION
  22. MAGNESIUM [Concomitant]
     Indication: SUPPLEMENTATION THERAPY

REACTIONS (1)
  - Conjunctivitis [Not Recovered/Not Resolved]
